FAERS Safety Report 7470154-1 (Version None)
Quarter: 2011Q2

REPORT INFORMATION
  Report Type: 
  Country: None (occurrence: None)
  Receive Date: 20110510
  Receipt Date: 20110506
  Transmission Date: 20111010
  Serious: Yes (Hospitalization)
  Sender: FDA-Public Use
  Company Number: B0712590A

PATIENT
  Sex: Female
  Weight: 56 kg

DRUGS (5)
  1. XELODA [Suspect]
     Dosage: 3000MG PER DAY
     Route: 048
     Dates: start: 20110308, end: 20110425
  2. METFORMIN HCL [Concomitant]
     Indication: DIABETES MELLITUS
     Dates: start: 20110411
  3. TYKERB [Suspect]
     Dosage: 1250MG PER DAY
     Route: 048
     Dates: start: 20110308, end: 20110430
  4. TYLENOL ER [Concomitant]
     Indication: PAIN
     Dosage: 60MG PER DAY
     Dates: start: 20110308, end: 20110403
  5. OXYCODONE [Concomitant]
     Indication: PAIN
     Dosage: 10MG PER DAY
     Dates: start: 20110308

REACTIONS (2)
  - HYPOPHAGIA [None]
  - DIARRHOEA [None]
